FAERS Safety Report 13145751 (Version 2)
Quarter: 2017Q1

REPORT INFORMATION
  Report Type: Spontaneous
  Country: US (occurrence: US)
  Receive Date: 20170124
  Receipt Date: 20170127
  Transmission Date: 20170428
  Serious: Yes (Other)
  Sender: FDA-Public Use
  Company Number: US-BAUSCH-BL-2016-031482

PATIENT
  Age: 37 Year
  Sex: Male
  Weight: 113.5 kg

DRUGS (3)
  1. ATIVAN [Suspect]
     Active Substance: LORAZEPAM
     Indication: MENIERE^S DISEASE
     Dosage: ONE TABLET TWICE DAILY OR 2 TABLETS DAILY DEPENDING ON ^HOW THE DAY IS^
     Route: 048
     Dates: start: 2006
  2. ATIVAN [Suspect]
     Active Substance: LORAZEPAM
     Route: 048
  3. SYNTHROID [Concomitant]
     Active Substance: LEVOTHYROXINE SODIUM
     Indication: HYPOTHYROIDISM
     Route: 048
     Dates: start: 1996

REACTIONS (15)
  - Vomiting [Not Recovered/Not Resolved]
  - Malaise [Not Recovered/Not Resolved]
  - Throat tightness [Not Recovered/Not Resolved]
  - Lymphadenopathy [Not Recovered/Not Resolved]
  - Influenza like illness [Not Recovered/Not Resolved]
  - Nasopharyngitis [Not Recovered/Not Resolved]
  - Pharyngeal oedema [Not Recovered/Not Resolved]
  - Asphyxia [Recovering/Resolving]
  - Heart rate increased [Not Recovered/Not Resolved]
  - Dizziness [Not Recovered/Not Resolved]
  - Drug effect incomplete [Unknown]
  - Off label use [Unknown]
  - Drug ineffective [Unknown]
  - Adverse drug reaction [Not Recovered/Not Resolved]
  - Nausea [Not Recovered/Not Resolved]

NARRATIVE: CASE EVENT DATE: 20161127
